FAERS Safety Report 8100125 (Version 3)
Quarter: 2013Q4

REPORT INFORMATION
  Report Type: Spontaneous
  Country: US (occurrence: US)
  Receive Date: 20110822
  Receipt Date: 20131127
  Transmission Date: 20140711
  Serious: Yes (Death, Hospitalization, Disabling, Other)
  Sender: FDA-Public Use
  Company Number: US-MPIJNJ-2011-03559

PATIENT
  Age: 83 Year
  Sex: Male

DRUGS (5)
  1. VELCADE [Suspect]
     Indication: PLASMA CELL MYELOMA
     Dosage: 3 MG, Q3WEEKS
     Route: 042
     Dates: start: 20100628, end: 20100816
  2. DEXAMETHASONE [Suspect]
     Indication: PLASMA CELL MYELOMA
  3. PREDNISONE [Suspect]
     Indication: PLASMA CELL MYELOMA
     Dosage: 2.5 MG, UNK
  4. VICODIN [Concomitant]
     Indication: PAIN
  5. FLOMAX                             /00889901/ [Concomitant]
     Indication: BENIGN PROSTATIC HYPERPLASIA

REACTIONS (8)
  - Respiratory arrest [Fatal]
  - Pain [Unknown]
  - Aspiration [Unknown]
  - Decubitus ulcer [Unknown]
  - Neuropathy peripheral [Unknown]
  - Ileus [Unknown]
  - Faecal vomiting [Unknown]
  - Thrombocytopenia [Unknown]
